FAERS Safety Report 6978809-X (Version None)
Quarter: 2010Q3

REPORT INFORMATION
  Report Type: 
  Country: None (occurrence: None)
  Receive Date: 20100913
  Receipt Date: 20100902
  Transmission Date: 20110219
  Serious: Yes (Other)
  Sender: FDA-Public Use
  Company Number: US-SANOFI-AVENTIS-2010SA053616

PATIENT
  Age: 79 Year
  Sex: Female
  Weight: 79 kg

DRUGS (4)
  1. LANTUS [Suspect]
     Indication: TYPE 2 DIABETES MELLITUS
     Dosage: 20 TO 30 UNITS TWICE DAILY
     Route: 058
  2. LANTUS [Suspect]
     Dosage: DOSE:20 UNIT(S)
     Route: 058
     Dates: start: 20100907
  3. GLIPIZIDE [Concomitant]
     Indication: TYPE 2 DIABETES MELLITUS
  4. METFORMIN [Concomitant]
     Indication: TYPE 2 DIABETES MELLITUS

REACTIONS (6)
  - ABDOMINAL DISCOMFORT [None]
  - DECREASED APPETITE [None]
  - HYPOGLYCAEMIA [None]
  - NAUSEA [None]
  - NIGHT SWEATS [None]
  - WEIGHT DECREASED [None]
